FAERS Safety Report 23529748 (Version 1)
Quarter: 2024Q1

REPORT INFORMATION
  Report Type: Spontaneous
  Country: US (occurrence: US)
  Receive Date: 20240216
  Receipt Date: 20240216
  Transmission Date: 20240409
  Serious: No
  Sender: FDA-Public Use
  Company Number: US-VALIDUS PHARMACEUTICALS LLC-US-VDP-2023-019059

PATIENT

DRUGS (4)
  1. LASIX [Suspect]
     Active Substance: FUROSEMIDE
     Indication: Product used for unknown indication
     Dosage: UNK, JUNE OR JULY THIS YEAR
     Route: 065
     Dates: start: 2023
  2. LASIX [Suspect]
     Active Substance: FUROSEMIDE
     Dosage: UNK, PRN
     Route: 065
  3. LASIX [Suspect]
     Active Substance: FUROSEMIDE
     Dosage: UNK, BID
     Route: 065
  4. ENTRESTO [Suspect]
     Active Substance: SACUBITRIL\VALSARTAN
     Indication: Product used for unknown indication
     Dosage: UNK
     Route: 065

REACTIONS (2)
  - Peripheral swelling [Unknown]
  - Fluid retention [Unknown]

NARRATIVE: CASE EVENT DATE: 20230101
